FAERS Safety Report 5229162-3 (Version None)
Quarter: 2007Q1

REPORT INFORMATION
  Report Type: 
  Country: None (occurrence: None)
  Receive Date: 20061201
  Receipt Date: 20061016
  Transmission Date: 20070707
  Serious: No
  Sender: FDA-Public Use
  Company Number: US200610002807

PATIENT
  Age: 54 Year
  Sex: Female

DRUGS (7)
  1. CYMBALTA [Suspect]
     Indication: PREMENSTRUAL SYNDROME
     Dosage: SEE IMAGE
     Dates: end: 20060901
  2. CYMBALTA [Suspect]
     Indication: PREMENSTRUAL SYNDROME
     Dosage: SEE IMAGE
     Dates: start: 20051001
  3. SYNTHROID [Concomitant]
  4. DOSTINEX [Concomitant]
  5. LAXATIVES [Concomitant]
  6. IRON (IRON) [Concomitant]
  7. INSULIN (INSULIN) [Concomitant]

REACTIONS (10)
  - BACK INJURY [None]
  - BLOOD GLUCOSE INCREASED [None]
  - CHILLS [None]
  - FALL [None]
  - FEELING ABNORMAL [None]
  - HYPERHIDROSIS [None]
  - INJURY [None]
  - NECK INJURY [None]
  - PAIN [None]
  - PARAESTHESIA [None]
